FAERS Safety Report 9159985 (Version 4)
Quarter: 2014Q2

REPORT INFORMATION
  Report Type: Report from Study
  Country: FR (occurrence: FR)
  Receive Date: 20130313
  Receipt Date: 20140630
  Transmission Date: 20141212
  Serious: Yes (Hospitalization, Disabling, Other)
  Sender: FDA-Public Use
  Company Number: FR-BAYER-2013-028694

PATIENT
  Age: 71 Year
  Sex: Female
  Weight: 47 kg

DRUGS (5)
  1. REGORAFENIB [Suspect]
     Indication: COLORECTAL CANCER METASTATIC
     Dosage: DAILY DOSE 120 MG
     Route: 048
     Dates: start: 20130131, end: 20130211
  2. REGORAFENIB [Suspect]
     Indication: COLORECTAL CANCER METASTATIC
     Dosage: DAILY DOSE 120 MG
     Dates: start: 20130218, end: 20130410
  3. COTAREG [Concomitant]
     Indication: HYPERTENSION
     Dosage: 160 / 12,5 MG
     Route: 048
     Dates: start: 201212, end: 20130211
  4. PREGABALIN [Concomitant]
     Indication: NEURALGIA
     Dosage: UNK
     Route: 048
     Dates: start: 201212, end: 20130411
  5. PARACETAMOL [Concomitant]
     Dosage: UNK
     Route: 048
     Dates: start: 201212, end: 20130411

REACTIONS (10)
  - Skin toxicity [Recovering/Resolving]
  - Wound [Recovering/Resolving]
  - Lymphoedema [Recovering/Resolving]
  - Asthenia [Recovering/Resolving]
  - Inappropriate schedule of drug administration [None]
  - Thrombosis [Not Recovered/Not Resolved]
  - Female genital tract fistula [Not Recovered/Not Resolved]
  - Diarrhoea [Recovered/Resolved]
  - Stomatitis [Recovered/Resolved]
  - Dysgeusia [Recovered/Resolved]
